FAERS Safety Report 8131414-4 (Version None)
Quarter: 2012Q1

REPORT INFORMATION
  Report Type: 
  Country: None (occurrence: None)
  Receive Date: 20120213
  Receipt Date: 20120207
  Transmission Date: 20120608
  Serious: Yes (Other)
  Sender: FDA-Public Use
  Company Number: US-AMGEN-USACT2012008219

PATIENT
  Age: 71 Year
  Sex: Female
  Weight: 65.306 kg

DRUGS (3)
  1. PANITUMUMAB [Suspect]
     Indication: BILE DUCT CANCER
     Dosage: 9 MG/M2, Q2WK
     Route: 042
     Dates: start: 20111220
  2. IRINOTECAN HCL [Concomitant]
     Indication: BILE DUCT CANCER
  3. GEMCITABINE [Concomitant]
     Indication: BILE DUCT CANCER

REACTIONS (2)
  - DEEP VEIN THROMBOSIS [None]
  - PULMONARY EMBOLISM [None]
